FAERS Safety Report 4838344-1 (Version None)
Quarter: 2005Q4

REPORT INFORMATION
  Report Type: 
  Country: None (occurrence: None)
  Receive Date: 20051128
  Receipt Date: 20050902
  Transmission Date: 20060501
  Serious: Yes (Other)
  Sender: FDA-Public Use
  Company Number: PHEH2005US09872

PATIENT
  Age: 84 Year
  Sex: Female

DRUGS (3)
  1. ZOMETA [Suspect]
     Indication: MULTIPLE MYELOMA
     Dosage: 4MG UNK
     Dates: start: 20020501, end: 20020801
  2. AREDIA [Suspect]
     Indication: MULTIPLE MYELOMA
     Dosage: 90MG UNK
  3. OXYGEN [Concomitant]

REACTIONS (6)
  - GINGIVAL DISORDER [None]
  - IMPAIRED HEALING [None]
  - OSTEONECROSIS [None]
  - THROMBOSIS [None]
  - TOOTH DISORDER [None]
  - TOOTH EXTRACTION [None]
